FAERS Safety Report 8837639 (Version 2)
Quarter: 2013Q1

REPORT INFORMATION
  Report Type: Spontaneous
  Country: BR (occurrence: BR)
  Receive Date: 20121012
  Receipt Date: 20130312
  Transmission Date: 20140127
  Serious: No
  Sender: FDA-Public Use
  Company Number: PHHY2012BR089762

PATIENT
  Sex: Male

DRUGS (4)
  1. GALVUS [Suspect]
     Dosage: 50 MG, UNK
  2. STARFORM [Suspect]
  3. GLIFAGE [Suspect]
     Indication: DIABETES MELLITUS
     Dosage: 750 MG, UNK
     Route: 048
     Dates: end: 201209
  4. DRUG USED IN DIABETES [Suspect]
     Indication: DIABETES MELLITUS
     Dosage: 1 DF, BID

REACTIONS (1)
  - Diabetes mellitus [Unknown]
